FAERS Safety Report 5808391-1 (Version None)
Quarter: 2008Q3

REPORT INFORMATION
  Report Type: 
  Country: None (occurrence: None)
  Receive Date: 20080714
  Receipt Date: 20080703
  Transmission Date: 20090109
  Serious: Yes (Other)
  Sender: FDA-Public Use
  Company Number: PHEH2008US03543

PATIENT
  Sex: Female
  Weight: 58.049 kg

DRUGS (8)
  1. STALEVO 100 [Suspect]
     Indication: PARKINSON'S DISEASE
     Dosage: 50/125/200 MG
     Route: 048
     Dates: start: 20080327, end: 20080329
  2. STALEVO 100 [Interacting]
     Dosage: 50/12.5/200  BID
     Dates: start: 20080401
  3. KEPPRA [Concomitant]
     Indication: CONVULSION
     Dosage: 1500 MG, BID
  4. SYNTHROID [Interacting]
     Indication: HYPOTHYROIDISM
     Dosage: 175 MG, QD
     Route: 048
  5. VITAMIN B-12 [Concomitant]
  6. CALCIUM [Concomitant]
  7. VITAMIN B COMPLEX CAP [Concomitant]
  8. LYRICA [Concomitant]

REACTIONS (4)
  - DRUG INTERACTION [None]
  - DYSPHAGIA [None]
  - ODYNOPHAGIA [None]
  - SENSATION OF FOREIGN BODY [None]
